FAERS Safety Report 11534087 (Version 3)
Quarter: 2016Q1

REPORT INFORMATION
  Report Type: Spontaneous
  Country: US (occurrence: US)
  Receive Date: 20150922
  Receipt Date: 20160216
  Transmission Date: 20160525
  Serious: Yes (Other)
  Sender: FDA-Public Use
  Company Number: US-ROCHE-1637000

PATIENT
  Sex: Male

DRUGS (6)
  1. ELIQUIS [Concomitant]
     Active Substance: APIXABAN
  2. ERIVEDGE [Suspect]
     Active Substance: VISMODEGIB
     Indication: BASAL CELL CARCINOMA
     Route: 048
     Dates: start: 20140503
  3. FUROSEMIDE. [Concomitant]
     Active Substance: FUROSEMIDE
  4. ERIVEDGE [Suspect]
     Active Substance: VISMODEGIB
     Indication: SALIVARY GLAND CANCER
  5. LEVOTHYROXIN [Concomitant]
     Active Substance: LEVOTHYROXINE
  6. ENSURE [Concomitant]
     Active Substance: AMINO ACIDS\DEXTROSE\ELECTROLYTES NOS\SOYBEAN OIL\VITAMINS

REACTIONS (5)
  - Malaise [Unknown]
  - Weight decreased [Unknown]
  - Asthenia [Unknown]
  - Dysgeusia [Unknown]
  - Cardiac failure congestive [Unknown]
